FAERS Safety Report 8950938 (Version 1)
Quarter: 2012Q4

REPORT INFORMATION
  Report Type: Spontaneous
  Country: US (occurrence: None)
  Receive Date: 20121130
  Receipt Date: 20121130
  Transmission Date: 20130627
  Serious: No
  Sender: FDA-Public Use
  Company Number: None

PATIENT
  Sex: Female
  Weight: 47.4 kg

DRUGS (1)
  1. FRAGMIN [Suspect]
     Dosage: Injectable   10,000 units   syringe

REACTIONS (2)
  - Medication error [None]
  - Incorrect dose administered [None]
